FAERS Safety Report 7904881-6 (Version None)
Quarter: 2011Q4

REPORT INFORMATION
  Report Type: 
  Country: None (occurrence: None)
  Receive Date: 20111109
  Receipt Date: 20111031
  Transmission Date: 20120403
  Serious: Yes (Other)
  Sender: FDA-Public Use
  Company Number: PHHY2011NL96439

PATIENT
  Sex: Male

DRUGS (7)
  1. ZOMETA [Suspect]
     Indication: PROSTATE CANCER METASTATIC
     Dosage: 4 MG/ /5ML ONCE PER 28 DAYS (IV 350 ML/HOUR)
     Dates: start: 20110218
  2. ZOMETA [Suspect]
     Dosage: 4 MG/ /5ML ONCE PER 28 DAYS (IV 350 ML/HOUR)
     Dates: start: 20111031
  3. ZOMETA [Suspect]
     Dosage: 4 MG/ /5ML ONCE PER 28 DAYS (IV 350 ML/HOUR)
     Dates: start: 20111006
  4. LEUPROLIDE ACETATE [Concomitant]
  5. AVODART [Concomitant]
  6. CASODEX [Concomitant]
  7. CA- D [Concomitant]

REACTIONS (3)
  - GENERAL PHYSICAL HEALTH DETERIORATION [None]
  - GAIT DISTURBANCE [None]
  - BONE PAIN [None]
